FAERS Safety Report 7092341-7 (Version None)
Quarter: 2010Q4

REPORT INFORMATION
  Report Type: 
  Country: None (occurrence: None)
  Receive Date: 20101109
  Receipt Date: 20101029
  Transmission Date: 20110411
  Serious: Yes (Disabling)
  Sender: FDA-Public Use
  Company Number: FR-GILEAD-2010-0033120

PATIENT
  Sex: Female

DRUGS (11)
  1. TRUVADA [Suspect]
     Indication: HIV INFECTION
     Route: 048
     Dates: start: 20071016
  2. TRUVADA [Suspect]
     Route: 048
     Dates: start: 20050308, end: 20070802
  3. REYATAZ [Suspect]
     Indication: HIV INFECTION
     Route: 048
     Dates: start: 20050308
  4. PEGASYS [Suspect]
     Indication: HEPATITIS C
     Route: 058
     Dates: start: 20091030, end: 20100817
  5. COPEGUS [Suspect]
     Indication: HEPATITIS C
     Route: 048
     Dates: start: 20091030, end: 20100817
  6. BACTRIM [Concomitant]
     Indication: PROPHYLAXIS
  7. SEROPLEX [Concomitant]
     Indication: DEPRESSION
     Route: 048
  8. SERESTA [Concomitant]
  9. LEVOTHYROXINE SODIUM [Concomitant]
     Indication: HYPOTHYROIDISM
  10. MS CONTIN [Concomitant]
  11. CHLOROQUINE PHOSPHATE [Concomitant]

REACTIONS (1)
  - OSTEONECROSIS [None]
